FAERS Safety Report 18208919 (Version 1)
Quarter: 2020Q3

REPORT INFORMATION
  Report Type: Spontaneous
  Country: CN (occurrence: CN)
  Receive Date: 20200828
  Receipt Date: 20200828
  Transmission Date: 20201103
  Serious: Yes (Other)
  Sender: FDA-Public Use
  Company Number: CN-PFIZER INC-2020330046

PATIENT
  Age: 70 Year
  Sex: Female

DRUGS (6)
  1. CELEBREX [Suspect]
     Active Substance: CELECOXIB
     Indication: DIZZINESS
  2. MERISLON [Concomitant]
     Active Substance: BETAHISTINE MESILATE
     Indication: SPINAL DISORDER
     Dosage: 6 MG, 3X/DAY
     Route: 048
     Dates: start: 20200715, end: 20200715
  3. CELEBREX [Suspect]
     Active Substance: CELECOXIB
     Indication: SPINAL DISORDER
     Dosage: 0.2 G, 1X/DAY
     Route: 048
     Dates: start: 20200715, end: 20200815
  4. MERISLON [Concomitant]
     Active Substance: BETAHISTINE MESILATE
     Indication: DIZZINESS
  5. YI SHEN BAO [Concomitant]
     Indication: SPINAL OSTEOARTHRITIS
     Dosage: 0.5 MG, 3X/DAY
     Route: 048
     Dates: start: 20200715, end: 20200715
  6. YI SHEN BAO [Concomitant]
     Indication: DIZZINESS

REACTIONS (2)
  - Hypersensitivity [Recovering/Resolving]
  - Liver injury [Recovering/Resolving]

NARRATIVE: CASE EVENT DATE: 20200815
